FAERS Safety Report 6716856-3 (Version None)
Quarter: 2010Q2

REPORT INFORMATION
  Report Type: 
  Country: None (occurrence: None)
  Receive Date: 20100510
  Receipt Date: 20100430
  Transmission Date: 20101027
  Serious: Yes (Hospitalization, Other)
  Sender: FDA-Public Use
  Company Number: IN-JNJFOC-20100501137

PATIENT
  Age: 19 Year
  Sex: Male

DRUGS (4)
  1. RISPERIDONE [Suspect]
     Indication: MAJOR DEPRESSION
     Route: 065
  2. ESCITALOPRAM [Interacting]
     Indication: MAJOR DEPRESSION
     Route: 065
  3. AMITRIPTLINE HYDROCHLORIDE TAB [Suspect]
     Indication: DEPRESSION
     Route: 065
  4. AMITRIPTLINE HYDROCHLORIDE TAB [Suspect]
     Dosage: AT NIGHT
     Route: 065

REACTIONS (6)
  - BRADYKINESIA [None]
  - COGNITIVE DISORDER [None]
  - DRUG INTERACTION [None]
  - MASKED FACIES [None]
  - MUSCLE RIGIDITY [None]
  - TREMOR [None]
